FAERS Safety Report 18567245 (Version 3)
Quarter: 2023Q1

REPORT INFORMATION
  Report Type: Spontaneous
  Country: US (occurrence: US)
  Receive Date: 20201201
  Receipt Date: 20230113
  Transmission Date: 20230418
  Serious: No
  Sender: FDA-Public Use
  Company Number: US-VIFOR (INTERNATIONAL) INC.-VIT-2020-11283

PATIENT
  Age: 87 Year
  Sex: Male
  Weight: 91.254 kg

DRUGS (8)
  1. VELTASSA [Suspect]
     Active Substance: PATIROMER
     Indication: Hyperkalaemia
     Dosage: PACKET
     Route: 048
     Dates: start: 20201016
  2. VELTASSA [Suspect]
     Active Substance: PATIROMER
     Dosage: FREQUENCY: DISSOLVE CONTENTS OF 1 PACKET INTO 1/3 CUP OF WATER AND DRINK FULL AMOUNT ONCE DAILY AS D
     Route: 048
     Dates: start: 20201020
  3. PRAVASTATIN [Concomitant]
     Active Substance: PRAVASTATIN
  4. METOPROLOL [Concomitant]
     Active Substance: METOPROLOL
  5. GLIMEPIRIDE [Concomitant]
     Active Substance: GLIMEPIRIDE
  6. LOSARTAN [Concomitant]
     Active Substance: LOSARTAN
  7. FUROSEMIDE [Concomitant]
     Active Substance: FUROSEMIDE
  8. ASPIRIN [Concomitant]
     Active Substance: ASPIRIN

REACTIONS (2)
  - Malaise [Unknown]
  - Diarrhoea [Recovered/Resolved]

NARRATIVE: CASE EVENT DATE: 20201110
